FAERS Safety Report 20781983 (Version 1)
Quarter: 2022Q2

REPORT INFORMATION
  Report Type: Spontaneous
  Country: US (occurrence: None)
  Receive Date: 20220504
  Receipt Date: 20220504
  Transmission Date: 20220721
  Serious: Yes (Other)
  Sender: FDA-Public Use
  Company Number: US-ROCHE-3080941

PATIENT
  Sex: Female

DRUGS (28)
  1. ESBRIET [Suspect]
     Active Substance: PIRFENIDONE
     Indication: Pulmonary fibrosis
     Dosage: 2 TABLETS IN MORNING,3 TABLETS IN AFTERNOON THEN 3 TABLETS IN EVENING
     Route: 048
     Dates: start: 20210224
  2. ALBUTEROL SULFATE [Concomitant]
     Active Substance: ALBUTEROL SULFATE
     Dosage: 2 PUFFS
     Route: 055
     Dates: start: 20200521
  3. AMLODIPINE [Concomitant]
     Active Substance: AMLODIPINE BESYLATE
     Dates: start: 20211222
  4. ATORVASTATIN [Concomitant]
     Active Substance: ATORVASTATIN
     Route: 048
     Dates: start: 20220304
  5. AZELASTINE [Concomitant]
     Active Substance: AZELASTINE
     Dosage: 1 SPRAY
     Route: 045
     Dates: start: 20220308
  6. AZELASTINE [Concomitant]
     Active Substance: AZELASTINE
     Dosage: SPRAY
     Route: 045
  7. CELECOXIB [Concomitant]
     Active Substance: CELECOXIB
     Dates: start: 20220222
  8. DULOXETINE [Concomitant]
     Active Substance: DULOXETINE
     Dates: start: 20220225
  9. GABAPENTIN [Concomitant]
     Active Substance: GABAPENTIN
     Route: 048
     Dates: start: 20220304
  10. IBUPROFEN [Concomitant]
     Active Substance: IBUPROFEN
     Dates: start: 20210611
  11. MONTELUKAST [Concomitant]
     Active Substance: MONTELUKAST SODIUM
     Route: 048
     Dates: start: 20220221
  12. MUPIROCIN [Concomitant]
     Active Substance: MUPIROCIN
  13. MYRBETRIQ [Concomitant]
     Active Substance: MIRABEGRON
     Dates: start: 20220304
  14. NAPROXEN [Concomitant]
     Active Substance: NAPROXEN
  15. NITROFURANTOIN MONOHYDRATE MACROCRYSTALS [Concomitant]
     Active Substance: NITROFURANTOIN\NITROFURANTOIN MONOHYDRATE
     Dates: start: 20220303
  16. OMEPRAZOLE [Concomitant]
     Active Substance: OMEPRAZOLE
     Route: 048
     Dates: start: 20220124
  17. PRAMIPEXOLE [Concomitant]
     Active Substance: PRAMIPEXOLE
     Dates: start: 20220218
  18. SUMATRIPTAN [Concomitant]
     Active Substance: SUMATRIPTAN
     Dates: start: 20220106
  19. TIZANIDINE [Concomitant]
     Active Substance: TIZANIDINE
     Route: 048
     Dates: start: 20220218
  20. TOPIRAMATE [Concomitant]
     Active Substance: TOPIRAMATE
  21. TRAMADOL [Concomitant]
     Active Substance: TRAMADOL
     Route: 048
     Dates: start: 20210128
  22. TRAZODONE [Concomitant]
     Active Substance: TRAZODONE HYDROCHLORIDE
     Dates: start: 20220127
  23. CALCIUM [Concomitant]
     Active Substance: CALCIUM
  24. ERGOCALCIFEROL [Concomitant]
     Active Substance: ERGOCALCIFEROL
     Dosage: 1000 UNITS
  25. ALERTEC [CETIRIZINE HYDROCHLORIDE] [Concomitant]
  26. FISH OIL [Concomitant]
     Active Substance: FISH OIL
  27. MELATONIN [Concomitant]
     Active Substance: MELATONIN
  28. TYLENOL [Concomitant]
     Active Substance: ACETAMINOPHEN

REACTIONS (11)
  - Hypertensive crisis [Unknown]
  - Rhinitis allergic [Unknown]
  - Cough [Unknown]
  - Pollakiuria [Unknown]
  - Dry skin [Unknown]
  - Headache [Unknown]
  - Temperature intolerance [Unknown]
  - Sleep disorder [Unknown]
  - Anxiety [Unknown]
  - Vocal cord paralysis [Unknown]
  - Blood alkaline phosphatase increased [Unknown]
